FAERS Safety Report 11674771 (Version 1)
Quarter: 2015Q4

REPORT INFORMATION
  Report Type: Spontaneous
  Country: US (occurrence: US)
  Receive Date: 20151027
  Receipt Date: 20151027
  Transmission Date: 20160304
  Serious: No
  Sender: FDA-Public Use
  Company Number: US-ELI_LILLY_AND_COMPANY-US201008006028

PATIENT
  Sex: Female

DRUGS (8)
  1. FORTEO [Suspect]
     Active Substance: TERIPARATIDE
     Dosage: 20 UG, DAILY (1/D)
     Route: 065
  2. HYDROCHLOROTHIAZIDE. [Concomitant]
     Active Substance: HYDROCHLOROTHIAZIDE
  3. CODEINE [Concomitant]
     Active Substance: CODEINE
  4. TYLENOL [Concomitant]
     Active Substance: ACETAMINOPHEN
  5. PREVACID [Concomitant]
     Active Substance: LANSOPRAZOLE
  6. MERCAPTOPURIN [Concomitant]
     Active Substance: MERCAPTOPURINE
  7. CANASA [Concomitant]
     Active Substance: MESALAMINE
  8. CIPRO [Concomitant]
     Active Substance: CIPROFLOXACIN HYDROCHLORIDE

REACTIONS (3)
  - Fistula [Unknown]
  - Infection [Unknown]
  - Crohn^s disease [Unknown]
